FAERS Safety Report 20462853 (Version 2)
Quarter: 2022Q2

REPORT INFORMATION
  Report Type: Report from Study
  Country: US (occurrence: US)
  Receive Date: 20220211
  Receipt Date: 20220616
  Transmission Date: 20220720
  Serious: Yes (Other)
  Sender: FDA-Public Use
  Company Number: US-TAKEDA-2022TUS006850

PATIENT
  Sex: Male

DRUGS (2)
  1. MARIBAVIR [Suspect]
     Active Substance: MARIBAVIR
     Indication: Cytomegalovirus infection
     Dosage: 400 MILLIGRAM, BID
     Route: 048
     Dates: start: 20211106
  2. MARIBAVIR [Suspect]
     Active Substance: MARIBAVIR
     Indication: Post procedural infection
     Dosage: UNK
     Route: 065
     Dates: start: 20211120

REACTIONS (5)
  - Impaired gastric emptying [Unknown]
  - Constipation [Unknown]
  - Nausea [Recovered/Resolved]
  - Dysgeusia [Unknown]
  - Product dose omission issue [Unknown]
